FAERS Safety Report 22394122 (Version 1)
Quarter: 2023Q2

REPORT INFORMATION
  Report Type: Report from Study
  Country: CL (occurrence: None)
  Receive Date: 20230601
  Receipt Date: 20230601
  Transmission Date: 20230722
  Serious: Yes (Other)
  Sender: FDA-Public Use
  Company Number: 2023A124501

PATIENT
  Age: 2526 Day
  Sex: Female

DRUGS (5)
  1. BUDESONIDE\FORMOTEROL FUMARATE DIHYDRATE [Suspect]
     Active Substance: BUDESONIDE\FORMOTEROL FUMARATE DIHYDRATE
     Indication: Bronchitis
     Dosage: 1 PUFF EVERY 12 HOURS80UG/INHAL EVERY 12 HOURS
     Route: 055
     Dates: start: 20230401
  2. DESLORATADINE [Concomitant]
     Active Substance: DESLORATADINE
     Dates: start: 20230401
  3. BRONCOTUSILAN [Concomitant]
     Indication: Cough
     Dates: start: 20230401
  4. FESEMA [Concomitant]
     Indication: Cough
     Dates: start: 20230401
  5. CORITEX [Concomitant]
     Indication: Cough

REACTIONS (4)
  - Asthma [Recovered/Resolved]
  - Nasopharyngitis [Not Recovered/Not Resolved]
  - Cough [Not Recovered/Not Resolved]
  - Urticaria [Recovered/Resolved]

NARRATIVE: CASE EVENT DATE: 20230520
